FAERS Safety Report 23940287 (Version 3)
Quarter: 2024Q3

REPORT INFORMATION
  Report Type: Spontaneous
  Country: US (occurrence: US)
  Receive Date: 20240605
  Receipt Date: 20240812
  Transmission Date: 20241017
  Serious: Yes (Death, Other)
  Sender: MICRO LABS
  Company Number: US-862174955-ML2024-03294

PATIENT
  Age: 51 Year
  Sex: Male
  Weight: 77 kg

DRUGS (1)
  1. CLOBAZAM [Suspect]
     Active Substance: CLOBAZAM
     Indication: Epilepsy
     Route: 048
     Dates: start: 20231219

REACTIONS (1)
  - Seizure [Fatal]
